FAERS Safety Report 6871794-0 (Version None)
Quarter: 2010Q3

REPORT INFORMATION
  Report Type: 
  Country: None (occurrence: None)
  Receive Date: 20100723
  Receipt Date: 20100716
  Transmission Date: 20110219
  Serious: Yes (Death, Hospitalization)
  Sender: FDA-Public Use
  Company Number: A0871936A

PATIENT
  Age: 46 Year
  Sex: Male

DRUGS (2)
  1. AVANDIA [Suspect]
     Dosage: 4MG PER DAY
     Route: 048
     Dates: end: 20070708
  2. AVANDAMET [Suspect]
     Route: 048
     Dates: end: 20070708

REACTIONS (2)
  - ACUTE CORONARY SYNDROME [None]
  - HYPERTENSION [None]
